FAERS Safety Report 13314209 (Version 1)
Quarter: 2017Q1

REPORT INFORMATION
  Report Type: Spontaneous
  Country: JP (occurrence: JP)
  Receive Date: 20170309
  Receipt Date: 20170309
  Transmission Date: 20170428
  Serious: Yes (Hospitalization)
  Sender: FDA-Public Use
  Company Number: PHJP2017JP007390

PATIENT
  Age: 81 Year
  Sex: Female

DRUGS (4)
  1. AFINITOR [Suspect]
     Active Substance: EVEROLIMUS
     Dosage: 2 DF, UNK
     Route: 048
     Dates: start: 201507, end: 201509
  2. AFINITOR [Suspect]
     Active Substance: EVEROLIMUS
     Indication: BREAST CANCER
     Dosage: 2 DF, UNK
     Route: 048
     Dates: start: 201506
  3. EXEMESTANE. [Concomitant]
     Active Substance: EXEMESTANE
     Indication: BREAST CANCER
     Dosage: UNK
     Route: 065
     Dates: start: 201506
  4. AFINITOR [Suspect]
     Active Substance: EVEROLIMUS
     Dosage: 1 DF, UNK
     Route: 048
     Dates: start: 201506

REACTIONS (7)
  - Nausea [Unknown]
  - Cell marker increased [Unknown]
  - Constipation [Unknown]
  - Stomatitis [Recovering/Resolving]
  - Diarrhoea [Unknown]
  - Oesophageal discomfort [Unknown]
  - Tumour marker increased [Unknown]

NARRATIVE: CASE EVENT DATE: 201506
